FAERS Safety Report 19937970 (Version 1)
Quarter: 2021Q4

REPORT INFORMATION
  Report Type: Spontaneous
  Country: US (occurrence: US)
  Receive Date: 20211011
  Receipt Date: 20211011
  Transmission Date: 20220304
  Serious: No
  Sender: FDA-Public Use
  Company Number: US-ROCHE-2847750

PATIENT
  Sex: Female

DRUGS (10)
  1. EVRYSDI [Suspect]
     Active Substance: RISDIPLAM
     Indication: Spinal muscular atrophy
     Dosage: VIA GTUBE
     Route: 050
     Dates: start: 20210602, end: 20210604
  2. EVRYSDI [Suspect]
     Active Substance: RISDIPLAM
  3. EVRYSDI [Suspect]
     Active Substance: RISDIPLAM
  4. EVRYSDI [Suspect]
     Active Substance: RISDIPLAM
  5. EVRYSDI [Suspect]
     Active Substance: RISDIPLAM
  6. EVRYSDI [Suspect]
     Active Substance: RISDIPLAM
     Dosage: VIA GTUBE
     Route: 050
     Dates: start: 20210609
  7. EVRYSDI [Suspect]
     Active Substance: RISDIPLAM
  8. EVRYSDI [Suspect]
     Active Substance: RISDIPLAM
  9. EVRYSDI [Suspect]
     Active Substance: RISDIPLAM
  10. EVRYSDI [Suspect]
     Active Substance: RISDIPLAM

REACTIONS (1)
  - Urinary tract infection [Recovered/Resolved]

NARRATIVE: CASE EVENT DATE: 20210604
